FAERS Safety Report 9753160 (Version 1)
Quarter: 2013Q4

REPORT INFORMATION
  Report Type: Spontaneous
  Country: US (occurrence: US)
  Receive Date: 20131213
  Receipt Date: 20131213
  Transmission Date: 20140711
  Serious: No
  Sender: FDA-Public Use
  Company Number: US-GILEAD-2010-0026786

PATIENT
  Sex: Female
  Weight: 95.25 kg

DRUGS (9)
  1. LETAIRIS [Suspect]
     Indication: PULMONARY ARTERIAL HYPERTENSION
     Route: 048
     Dates: start: 20090427
  2. REVATIO [Concomitant]
  3. PLAVIX [Concomitant]
  4. LASIX [Concomitant]
  5. MOEXIPRIL [Concomitant]
  6. NORVASC [Concomitant]
  7. HYDROCODONE [Concomitant]
  8. FLUOXETINE [Concomitant]
  9. OMEPRAZOLE [Concomitant]

REACTIONS (2)
  - Dyspnoea [Unknown]
  - Local swelling [Unknown]
